FAERS Safety Report 14804543 (Version 7)
Quarter: 2024Q3

REPORT INFORMATION
  Report Type: Report from Study
  Country: FR (occurrence: FR)
  Receive Date: 20180425
  Receipt Date: 20240827
  Transmission Date: 20241016
  Serious: Yes (Other)
  Sender: AUROBINDO
  Company Number: FR-AUROBINDO-AUR-APL-2018-020567

PATIENT
  Age: 20 Year
  Sex: Female

DRUGS (4)
  1. ARIPIPRAZOLE [Interacting]
     Active Substance: ARIPIPRAZOLE
     Indication: Autism spectrum disorder
     Dosage: 10 MILLIGRAM, ONCE A DAY
     Route: 065
  2. ARIPIPRAZOLE [Interacting]
     Active Substance: ARIPIPRAZOLE
     Indication: Neurodevelopmental disorder
  3. RISPERIDONE [Interacting]
     Active Substance: RISPERIDONE
     Indication: Autism spectrum disorder
     Dosage: UNK
     Route: 065
  4. RISPERIDONE [Interacting]
     Active Substance: RISPERIDONE
     Indication: Neurodevelopmental disorder

REACTIONS (9)
  - Agitation [Unknown]
  - Aggression [Unknown]
  - Anxiety [Unknown]
  - Drug interaction [Unknown]
  - Intentional self-injury [Unknown]
  - Scar [Unknown]
  - Paradoxical drug reaction [Unknown]
  - Product use in unapproved indication [Recovered/Resolved]
  - Off label use [Recovered/Resolved]
